FAERS Safety Report 7949480-5 (Version None)
Quarter: 2011Q4

REPORT INFORMATION
  Report Type: 
  Country: None (occurrence: None)
  Receive Date: 20111130
  Receipt Date: 20111118
  Transmission Date: 20120403
  Serious: Yes (Hospitalization)
  Sender: FDA-Public Use
  Company Number: US-BAYER-2011-078118

PATIENT
  Age: 28 Year
  Sex: Female
  Weight: 63.492 kg

DRUGS (3)
  1. YASMIN [Suspect]
     Dosage: UNK
     Dates: start: 20060801, end: 20070401
  2. ANTIBIOTICS [Concomitant]
     Indication: PELVIC INFLAMMATORY DISEASE
     Route: 048
  3. ANTIBIOTICS [Concomitant]
     Route: 042

REACTIONS (9)
  - APHAGIA [None]
  - PANIC ATTACK [None]
  - CHOLELITHIASIS [None]
  - PAIN [None]
  - STRESS [None]
  - WEIGHT DECREASED [None]
  - OVARIAN ADENOMA [None]
  - UTERINE HAEMORRHAGE [None]
  - OVARIAN CYST [None]
